FAERS Safety Report 12285374 (Version 1)
Quarter: 2016Q2

REPORT INFORMATION
  Report Type: Spontaneous
  Country: US (occurrence: None)
  Receive Date: 20160419
  Receipt Date: 20160419
  Transmission Date: 20160815
  Serious: Yes (Life-Threatening, Hospitalization, Disabling)
  Sender: FDA-Public Use
  Company Number: None

PATIENT
  Age: 49 Year
  Sex: Male
  Weight: 74.84 kg

DRUGS (4)
  1. CELECOXIB CAB 200MG, 200 MG [Suspect]
     Active Substance: CELECOXIB
     Indication: LUMBAR SPINAL STENOSIS
     Route: 048
  2. CELECOXIB CAB 200MG, 200 MG [Suspect]
     Active Substance: CELECOXIB
     Indication: SCOLIOSIS
     Route: 048
  3. CELECOXIB CAB 200MG, 200 MG [Suspect]
     Active Substance: CELECOXIB
     Indication: PAIN
     Route: 048
  4. TYLENOL [Concomitant]
     Active Substance: ACETAMINOPHEN

REACTIONS (4)
  - Coma [None]
  - Dialysis [None]
  - Impaired work ability [None]
  - Acute kidney injury [None]

NARRATIVE: CASE EVENT DATE: 20160310
